FAERS Safety Report 20230424 (Version 1)
Quarter: 2021Q4

REPORT INFORMATION
  Report Type: Report from Study
  Country: BR (occurrence: BR)
  Receive Date: 20211227
  Receipt Date: 20211227
  Transmission Date: 20220303
  Serious: Yes (Other)
  Sender: FDA-Public Use
  Company Number: BR-JNJFOC-20211252099

PATIENT
  Sex: Female
  Weight: 68 kg

DRUGS (1)
  1. INFLIXIMAB [Suspect]
     Active Substance: INFLIXIMAB
     Indication: Ankylosing spondylitis
     Route: 042
     Dates: start: 20161221

REACTIONS (5)
  - Myocardial infarction [Unknown]
  - Tachycardia [Unknown]
  - Muscle contractions involuntary [Unknown]
  - Headache [Unknown]
  - Erythema [Unknown]
